FAERS Safety Report 4357598-1 (Version None)
Quarter: 2004Q2

REPORT INFORMATION
  Report Type: 
  Country: None (occurrence: None)
  Receive Date: 20040512
  Receipt Date: 20040512
  Transmission Date: 20050107
  Serious: Yes (Life-Threatening, Hospitalization)
  Sender: FDA-Public Use
  Company Number: None

PATIENT
  Age: 64 Year
  Sex: Male

DRUGS (1)
  1. ENALAPRIL MALEATE [Suspect]
     Indication: HYPERTENSION
     Dosage: 5 MG PO ORAL
     Route: 048
     Dates: start: 20031120, end: 20040130

REACTIONS (2)
  - ANGIONEUROTIC OEDEMA [None]
  - DYSPHAGIA [None]
